FAERS Safety Report 10468228 (Version 1)
Quarter: 2014Q3

REPORT INFORMATION
  Report Type: Spontaneous
  Country: US (occurrence: US)
  Receive Date: 20140922
  Receipt Date: 20140922
  Transmission Date: 20150326
  Serious: Yes (Other)
  Sender: FDA-Public Use
  Company Number: US-PFIZER INC-2014256901

PATIENT
  Age: 53 Year
  Sex: Male

DRUGS (1)
  1. ELETRIPTAN HBR [Suspect]
     Active Substance: ELETRIPTAN HYDROBROMIDE
     Indication: MIGRAINE
     Dosage: 120MG IN 24H

REACTIONS (3)
  - Sinus bradycardia [Unknown]
  - Acute myocardial infarction [Unknown]
  - Overdose [Unknown]
